FAERS Safety Report 7689574 (Version 4)
Quarter: 2012Q4

REPORT INFORMATION
  Report Type: Report from Study
  Country: FR (occurrence: FR)
  Receive Date: 20101202
  Receipt Date: 20121003
  Transmission Date: 20130627
  Serious: Yes (Hospitalization, Other)
  Sender: FDA-Public Use
  Company Number: PHHY2010FR79756

PATIENT
  Age: 77 Year
  Sex: Male
  Weight: 99 kg

DRUGS (14)
  1. AMN107 [Suspect]
     Indication: CHRONIC MYELOID LEUKAEMIA
     Dosage: 400 mg, BID
     Route: 048
     Dates: start: 20090115, end: 20101116
  2. NEORECORMON [Concomitant]
     Indication: ANAEMIA
     Route: 058
  3. TAMSULOSIN [Concomitant]
  4. MONO-TILDIEM [Concomitant]
     Indication: HYPERTENSION
  5. MONO-TILDIEM [Concomitant]
     Indication: ARRHYTHMIA
  6. MONO-TILDIEM [Concomitant]
     Indication: ATRIAL FIBRILLATION
  7. SIMVASTATIN [Concomitant]
  8. RAMIPRIL [Concomitant]
     Indication: HYPERTENSION
  9. LYRICA [Concomitant]
     Indication: PARAESTHESIA
     Dosage: 75 mg, QD
  10. PLAVIX [Concomitant]
     Indication: ARRHYTHMIA
  11. PLAVIX [Concomitant]
     Indication: ATRIAL FIBRILLATION
  12. ZOLPIDEM [Concomitant]
  13. NEXIUM [Concomitant]
  14. ZYLORIC [Concomitant]

REACTIONS (8)
  - Arteritis [Not Recovered/Not Resolved]
  - Extremity necrosis [Not Recovered/Not Resolved]
  - Diplopia [Recovered/Resolved]
  - Peripheral artery thrombosis [Recovered/Resolved with Sequelae]
  - Cerebellar haematoma [Not Recovered/Not Resolved]
  - Atrial fibrillation [Unknown]
  - Arrhythmia [Recovered/Resolved]
  - Pain in extremity [Unknown]
